FAERS Safety Report 9055357 (Version 2)
Quarter: 2013Q1

REPORT INFORMATION
  Report Type: Spontaneous
  Country: US (occurrence: US)
  Receive Date: 20130206
  Receipt Date: 20130328
  Transmission Date: 20140127
  Serious: No
  Sender: FDA-Public Use
  Company Number: US-TEVA-384919USA

PATIENT
  Age: 30 None
  Sex: Female

DRUGS (1)
  1. NUVIGIL [Suspect]
     Indication: NARCOLEPSY
     Dosage: 150 MILLIGRAM DAILY;
     Dates: start: 2011, end: 201201

REACTIONS (3)
  - Pregnancy [Recovered/Resolved]
  - Pre-eclampsia [Unknown]
  - Polymorphic eruption of pregnancy [Unknown]
